FAERS Safety Report 13912850 (Version 1)
Quarter: 2017Q3

REPORT INFORMATION
  Report Type: Spontaneous
  Country: CA (occurrence: CA)
  Receive Date: 20170828
  Receipt Date: 20170828
  Transmission Date: 20171127
  Serious: Yes (Disabling)
  Sender: FDA-Public Use
  Company Number: CA-MYLANLABS-2017M1053682

PATIENT
  Age: 74 Year
  Sex: Male
  Weight: 88 kg

DRUGS (1)
  1. GALANTAMINE MYLAN [Suspect]
     Active Substance: GALANTAMINE HYDROBROMIDE
     Indication: DEMENTIA
     Dosage: 24 MG, QD

REACTIONS (2)
  - Fatigue [Not Recovered/Not Resolved]
  - Mood altered [Not Recovered/Not Resolved]
